FAERS Safety Report 10251082 (Version 3)
Quarter: 2014Q2

REPORT INFORMATION
  Report Type: Spontaneous
  Country: JP (occurrence: JP)
  Receive Date: 20140620
  Receipt Date: 20140625
  Transmission Date: 20141212
  Serious: Yes (Other)
  Sender: FDA-Public Use
  Company Number: JP-ABBVIE-14P-087-1227779-00

PATIENT
  Sex: Male
  Weight: 2.04 kg

DRUGS (2)
  1. KALETRA [Suspect]
     Indication: MATERNAL EXPOSURE TIMING UNSPECIFIED
     Route: 064
  2. ZIDOVUDINE [Suspect]
     Indication: PRODUCT USED FOR UNKNOWN INDICATION

REACTIONS (4)
  - Neonatal tachypnoea [Recovered/Resolved]
  - Premature baby [Unknown]
  - Anaemia [Unknown]
  - Foetal exposure during pregnancy [Unknown]
